FAERS Safety Report 9087537 (Version 1)
Quarter: 2013Q1

REPORT INFORMATION
  Report Type: Spontaneous
  Country: US (occurrence: US)
  Receive Date: 20130201
  Receipt Date: 20130201
  Transmission Date: 20140127
  Serious: Yes (Other)
  Sender: FDA-Public Use
  Company Number: GXBR2013US000525

PATIENT
  Sex: Male

DRUGS (1)
  1. ENOXAPARIN SODIUM [Suspect]
     Dosage: UNK MG, Q12H
     Route: 030
     Dates: start: 20121212

REACTIONS (2)
  - Hypoglycaemic coma [Unknown]
  - Blood glucose decreased [Unknown]
